FAERS Safety Report 8924057 (Version 1)
Quarter: 2012Q4

REPORT INFORMATION
  Report Type: 
  Country: IT (occurrence: IT)
  Receive Date: 20121126
  Receipt Date: 20121126
  Transmission Date: 20130627
  Serious: Yes (Hospitalization)
  Sender: FDA-Public Use
  Company Number: PHHY2012IT107213

PATIENT
  Age: 42 Year
  Sex: Male

DRUGS (1)
  1. AMOXICILLIN [Suspect]
     Indication: TOOTHACHE
     Dosage: 1 g, daily dose
     Route: 048
     Dates: start: 20120205, end: 20120205

REACTIONS (2)
  - Throat tightness [Recovering/Resolving]
  - Erythema [Recovering/Resolving]
